FAERS Safety Report 8605579-1 (Version None)
Quarter: 2012Q3

REPORT INFORMATION
  Report Type: 
  Country: None (occurrence: None)
  Receive Date: 20120820
  Receipt Date: 20120813
  Transmission Date: 20120928
  Serious: Yes (Hospitalization)
  Sender: FDA-Public Use
  Company Number: US-B.I. PHARMACEUTICALS,INC./RIDGEFIELD-2012-BP-19055BP

PATIENT
  Sex: Female

DRUGS (1)
  1. SPIRIVA [Suspect]
     Indication: CHRONIC OBSTRUCTIVE PULMONARY DISEASE
     Dosage: 18 MCG
     Route: 055
     Dates: start: 20120701, end: 20120806

REACTIONS (11)
  - RETCHING [None]
  - COUGH [None]
  - INCREASED UPPER AIRWAY SECRETION [None]
  - CHEST DISCOMFORT [None]
  - DYSPNOEA [None]
  - BLEPHAROSPASM [None]
  - INTRAOCULAR PRESSURE TEST [None]
  - OXYGEN SATURATION DECREASED [None]
  - SINUS HEADACHE [None]
  - OROPHARYNGEAL PAIN [None]
  - ASTHENIA [None]
